FAERS Safety Report 17529360 (Version 4)
Quarter: 2020Q1

REPORT INFORMATION
  Report Type: Spontaneous
  Country: ES (occurrence: ES)
  Receive Date: 20200311
  Receipt Date: 20200331
  Transmission Date: 20200409
  Serious: Yes (Life-Threatening, Hospitalization, Other)
  Sender: FDA-Public Use
  Company Number: ES-MYLANLABS-2020M1026350

PATIENT
  Age: 53 Year
  Sex: Female
  Weight: 67 kg

DRUGS (15)
  1. TRACLEER [Interacting]
     Active Substance: BOSENTAN
     Indication: PULMONARY ARTERIAL HYPERTENSION
     Dosage: 125 MILLIGRAM, BID
     Route: 065
     Dates: start: 201801, end: 2018
  2. RALTEGRAVIR. [Interacting]
     Active Substance: RALTEGRAVIR
     Indication: HIV INFECTION
     Dosage: 400 MILLIGRAM, BID
     Route: 065
     Dates: start: 20180122, end: 20181004
  3. TADALAFIL. [Concomitant]
     Active Substance: TADALAFIL
     Dosage: 20 MILLIGRAM, QD (RE-INTRODUCED)
     Route: 065
     Dates: start: 201804
  4. RILPIVIRINE [Concomitant]
     Active Substance: RILPIVIRINE
     Indication: HIV INFECTION
     Dosage: 25 MILLIGRAM, QD
     Route: 065
     Dates: start: 2018, end: 201804
  5. LOPINAVIR/RITONAVIR [Interacting]
     Active Substance: LOPINAVIR\RITONAVIR
     Dosage: UNK
  6. TRACLEER [Interacting]
     Active Substance: BOSENTAN
     Dosage: 125 MILLIGRAM, BID (RE-INTRODUCED)
     Route: 065
     Dates: start: 20180409, end: 20181008
  7. RITONAVIR. [Concomitant]
     Active Substance: RITONAVIR
  8. ISENTRESS [Concomitant]
     Active Substance: RALTEGRAVIR POTASSIUM
     Indication: HIV INFECTION
     Dosage: UNK
     Route: 048
     Dates: start: 20180122, end: 20181004
  9. COBICISTAT W/DARUNAVIR [Interacting]
     Active Substance: COBICISTAT\DARUNAVIR ETHANOLATE
     Indication: HIV INFECTION
     Dosage: 800/150 MG (DOSE 1)
     Route: 065
     Dates: start: 201804, end: 2018
  10. GLECAPREVIR;PIBRENTASVIR [Concomitant]
     Active Substance: GLECAPREVIR\PIBRENTASVIR
     Indication: HEPATITIS C
     Dosage: UNK
     Route: 065
     Dates: start: 2018, end: 2018
  11. RALTEGRAVIR. [Interacting]
     Active Substance: RALTEGRAVIR
     Indication: HEPATITIS C
     Dosage: UNK
  12. LOPINAVIR/RITONAVIR [Suspect]
     Active Substance: LOPINAVIR\RITONAVIR
     Indication: HIV INFECTION
     Dosage: 400/100 MG, BID (TWICE DAILY)
     Route: 065
     Dates: start: 201801, end: 2018
  13. TADALAFIL. [Concomitant]
     Active Substance: TADALAFIL
     Indication: PULMONARY ARTERIAL HYPERTENSION
     Dosage: 20 MILLIGRAM, QD
     Route: 065
     Dates: start: 201801, end: 2018
  14. COBICISTAT W/DARUNAVIR [Interacting]
     Active Substance: COBICISTAT\DARUNAVIR ETHANOLATE
     Indication: HEPATITIS C
     Dosage: UNK (800/150 MG, QD)
     Dates: start: 20180501, end: 20181004
  15. REZOLSTA [Concomitant]
     Active Substance: COBICISTAT\DARUNAVIR ETHANOLATE
     Indication: HIV INFECTION
     Dosage: UNK
     Route: 048
     Dates: start: 20180501, end: 20181004

REACTIONS (9)
  - Respiratory failure [Recovered/Resolved]
  - Drug resistance [Unknown]
  - Toxicity to various agents [Recovered/Resolved]
  - Cardiac failure congestive [Recovered/Resolved]
  - Virologic failure [Recovered/Resolved]
  - Gene mutation [Recovered/Resolved]
  - Fluid retention [Recovering/Resolving]
  - Cardiac failure [Recovered/Resolved]
  - Drug interaction [Recovered/Resolved]

NARRATIVE: CASE EVENT DATE: 2018
